FAERS Safety Report 25647565 (Version 1)
Quarter: 2025Q3

REPORT INFORMATION
  Report Type: Spontaneous
  Country: US (occurrence: US)
  Receive Date: 20250806
  Receipt Date: 20250806
  Transmission Date: 20251020
  Serious: Yes (Life-Threatening, Hospitalization, Other)
  Sender: NOVO NORDISK
  Company Number: US-NOVOPROD-1491088

PATIENT
  Age: 51 Year

DRUGS (2)
  1. OZEMPIC [Suspect]
     Active Substance: SEMAGLUTIDE
     Indication: Type 2 diabetes mellitus
     Dates: start: 202205, end: 202406
  2. VICTOZA [Suspect]
     Active Substance: LIRAGLUTIDE
     Indication: Type 2 diabetes mellitus
     Dates: start: 201706, end: 202204

REACTIONS (8)
  - Dehydration [Not Recovered/Not Resolved]
  - Oesophageal injury [Not Recovered/Not Resolved]
  - Intestinal obstruction [Not Recovered/Not Resolved]
  - Ileus [Not Recovered/Not Resolved]
  - Impaired gastric emptying [Not Recovered/Not Resolved]
  - Malnutrition [Not Recovered/Not Resolved]
  - Emotional distress [Not Recovered/Not Resolved]
  - Colon injury [Not Recovered/Not Resolved]
